FAERS Safety Report 12376370 (Version 1)
Quarter: 2016Q2

REPORT INFORMATION
  Report Type: Spontaneous
  Country: FR (occurrence: FR)
  Receive Date: 20160517
  Receipt Date: 20160517
  Transmission Date: 20160815
  Serious: Yes (Hospitalization, Other)
  Sender: FDA-Public Use
  Company Number: FR-UCBSA-2016017660

PATIENT
  Sex: Female

DRUGS (1)
  1. KEPPRA [Suspect]
     Active Substance: LEVETIRACETAM
     Indication: EPILEPSY
     Dosage: 750 MG, 2X/DAY (BID)
     Dates: start: 20150705, end: 20160320

REACTIONS (6)
  - Exposure during pregnancy [Unknown]
  - Oligohydramnios [Unknown]
  - Premature delivery [Unknown]
  - Premature rupture of membranes [Unknown]
  - Hyperthermia [Unknown]
  - Cough [Unknown]

NARRATIVE: CASE EVENT DATE: 20150705
